FAERS Safety Report 9691242 (Version 2)
Quarter: 2014Q1

REPORT INFORMATION
  Report Type: Spontaneous
  Country: US (occurrence: US)
  Receive Date: 20131115
  Receipt Date: 20140115
  Transmission Date: 20141002
  Serious: Yes (Hospitalization)
  Sender: FDA-Public Use
  Company Number: US-009507513-1311USA004987

PATIENT
  Age: 59 Year
  Sex: Male

DRUGS (2)
  1. VICTRELIS [Suspect]
     Indication: HEPATITIS C
     Dosage: 800 MG, TID
     Route: 048
     Dates: start: 20130621, end: 20131013
  2. RIBAPAK [Suspect]
     Dosage: UNK
     Dates: end: 2013

REACTIONS (4)
  - Pneumonia [Unknown]
  - Full blood count decreased [Unknown]
  - Local swelling [Unknown]
  - Immune system disorder [Unknown]
